FAERS Safety Report 9452474 (Version 1)
Quarter: 2013Q3

REPORT INFORMATION
  Report Type: Spontaneous
  Country: US (occurrence: None)
  Receive Date: 20130808
  Receipt Date: 20130808
  Transmission Date: 20140515
  Serious: Yes (Other)
  Sender: FDA-Public Use
  Company Number: None

PATIENT
  Sex: Male
  Weight: 108 kg

DRUGS (15)
  1. ALLOPURINOL [Suspect]
     Indication: GOUT
     Dosage: 200MG/ 17 PILLS
     Route: 048
     Dates: start: 20130730, end: 20130806
  2. ALBUTEROL [Concomitant]
  3. ALLOPURINOL [Concomitant]
  4. SYMBICORT [Concomitant]
  5. PHOSLO [Concomitant]
  6. MAXIPIME [Concomitant]
  7. CALCIFEROL [Concomitant]
  8. DEXTROSE [Concomitant]
  9. COLACE [Concomitant]
  10. HEPARIN [Concomitant]
  11. NOVOLOG [Concomitant]
  12. LACTULOSE [Concomitant]
  13. ZOFRAN [Concomitant]
  14. NEHPROVITE [Concomitant]
  15. SPIRIVA [Concomitant]

REACTIONS (2)
  - Rash maculo-papular [None]
  - Rash generalised [None]
